FAERS Safety Report 5755101-2 (Version None)
Quarter: 2008Q2

REPORT INFORMATION
  Report Type: 
  Country: None (occurrence: None)
  Receive Date: 20080602
  Receipt Date: 20080318
  Transmission Date: 20081010
  Serious: No
  Sender: FDA-Public Use
  Company Number: A0713545A

PATIENT
  Age: 20 Year
  Sex: Male

DRUGS (2)
  1. AUGMENTIN '125' [Suspect]
     Indication: DRUG USE FOR UNKNOWN INDICATION
     Dosage: 875MG TWICE PER DAY
     Route: 048
     Dates: start: 20080129
  2. NO CONCURRENT MEDICATION [Concomitant]

REACTIONS (1)
  - VOMITING [None]
